FAERS Safety Report 8458131-5 (Version None)
Quarter: 2012Q2

REPORT INFORMATION
  Report Type: 
  Country: None (occurrence: None)
  Receive Date: 20120622
  Receipt Date: 20120612
  Transmission Date: 20120825
  Serious: Yes (Other)
  Sender: FDA-Public Use
  Company Number: CA-JNJFOC-20120601393

PATIENT
  Sex: Female
  Weight: 70.7 kg

DRUGS (11)
  1. OXYCODONE HCL [Concomitant]
     Indication: PAIN
     Route: 048
  2. ACEBUTOLOL [Concomitant]
     Indication: CARDIAC DISORDER
     Route: 048
  3. REMICADE [Suspect]
     Indication: RHEUMATOID ARTHRITIS
     Route: 042
     Dates: end: 20110315
  4. PREGABALIN [Concomitant]
     Indication: PAIN
     Route: 048
  5. PREDNISONE TAB [Concomitant]
     Indication: RHEUMATOID ARTHRITIS
     Dosage: TAPERING DOSE
     Route: 065
  6. FOLIC ACID [Concomitant]
     Indication: RHEUMATOID ARTHRITIS
     Route: 048
  7. REMICADE [Suspect]
     Route: 042
     Dates: start: 20081218
  8. AMITRIPTYLINE HCL [Concomitant]
     Indication: SEDATION
     Route: 048
  9. METHOTREXATE [Concomitant]
     Indication: RHEUMATOID ARTHRITIS
     Route: 058
  10. SYNTHROID [Concomitant]
     Indication: THYROID DISORDER
     Route: 065
  11. HYDROCHLOROTHIAZIDE [Concomitant]
     Indication: HYPERTENSION
     Route: 048

REACTIONS (6)
  - INFLAMMATION [None]
  - HEMIPARESIS [None]
  - ARTHRITIS BACTERIAL [None]
  - OSTEOMYELITIS [None]
  - INFECTION [None]
  - APHASIA [None]
